FAERS Safety Report 8094107 (Version 4)
Quarter: 2012Q4

REPORT INFORMATION
  Report Type: Report from Study
  Country: KR (occurrence: KR)
  Receive Date: 20110817
  Receipt Date: 20121203
  Transmission Date: 20130627
  Serious: Yes (Death)
  Sender: FDA-Public Use
  Company Number: KR-BAYER-2011-071922

PATIENT
  Age: 66 Year
  Sex: Female
  Weight: 68 kg

DRUGS (19)
  1. SORAFENIB (RAF KINASE INHIBITOR) [Suspect]
     Indication: CARCINOMA HEPATOCELLULAR
     Dosage: 400 mg, BID
     Dates: start: 20110527, end: 20110624
  2. ZANTAC [Concomitant]
     Indication: GASTROINTESTINAL SYMPTOM NOS
     Dosage: 300 mg, QD
     Dates: start: 20110329, end: 20110607
  3. TRAMADOL [Concomitant]
     Indication: ANALGESIC THERAPY
     Dosage: 100 mg, QD
     Dates: start: 20110423, end: 20110607
  4. MEGACE [Concomitant]
     Indication: DECREASED APPETITE
     Dosage: 20 ml, QD
     Dates: start: 20110502
  5. ZEFFIX [Concomitant]
     Dosage: 100 mg, QD
     Dates: start: 2010
  6. MUCOSTA [Concomitant]
     Indication: GASTROINTESTINAL SYMPTOM NOS
     Dosage: 300 mg, QD
     Dates: start: 20100717, end: 20110607
  7. GANATON [Concomitant]
     Indication: GASTROINTESTINAL SYMPTOM NOS
     Dosage: 150 mg, QD
     Dates: start: 20110329, end: 20110607
  8. HEPSERA [Concomitant]
     Dosage: 10 mg, QD
     Dates: start: 20110607
  9. LANSOPRAZOLE [Concomitant]
     Indication: GASTROINTESTINAL SYMPTOM NOS
     Dosage: 15 mg, QD
     Dates: start: 20110608
  10. PLASMA, FRESH FROZEN [Concomitant]
     Dosage: 4 u, 400 cc
     Dates: start: 20110624
  11. PLASMA, FRESH FROZEN [Concomitant]
     Dosage: 6 u, 400 cc
     Dates: start: 20110625
  12. PLASMA, FRESH FROZEN [Concomitant]
     Dosage: 6 u, 400 cc
     Dates: start: 20110626
  13. PLASMA, FRESH FROZEN [Concomitant]
     Dosage: 4 u, 400 cc
     Dates: start: 20110627
  14. PLASMA, FRESH FROZEN [Concomitant]
     Dosage: 4 u, 400 cc
     Dates: start: 20110628
  15. PLASMA, FRESH FROZEN [Concomitant]
     Dosage: 6 u, 400 cc
     Dates: start: 20110629
  16. PLASMA, FRESH FROZEN [Concomitant]
     Dosage: 6 u, 400 cc
     Dates: start: 20110630
  17. PLASMA, FRESH FROZEN [Concomitant]
     Dosage: 6 u, 400 cc
     Dates: start: 20110701
  18. PACKED RED BLOOD CELLS [Concomitant]
     Dosage: Daily dose 400 ml
     Dates: start: 20110620
  19. PACKED RED BLOOD CELLS [Concomitant]
     Dosage: 2 u, 400 cc
     Dates: start: 20110701

REACTIONS (1)
  - Hepatic failure [Fatal]
